FAERS Safety Report 11131310 (Version 1)
Quarter: 2015Q2

REPORT INFORMATION
  Report Type: Spontaneous
  Country: US (occurrence: US)
  Receive Date: 20150522
  Receipt Date: 20150522
  Transmission Date: 20150821
  Serious: No
  Sender: FDA-Public Use
  Company Number: US-JNJFOC-20150512593

PATIENT
  Age: 4 Decade
  Sex: Male

DRUGS (4)
  1. INVEGA SUSTENNA [Suspect]
     Active Substance: PALIPERIDONE PALMITATE
     Indication: BIPOLAR DISORDER
     Route: 030
  2. RISPERDAL [Suspect]
     Active Substance: RISPERIDONE
     Indication: BIPOLAR DISORDER
     Route: 048
  3. THORAZINE [Concomitant]
     Active Substance: CHLORPROMAZINE
     Route: 065
  4. INVEGA [Suspect]
     Active Substance: PALIPERIDONE
     Indication: BIPOLAR DISORDER
     Route: 048

REACTIONS (6)
  - Anger [Unknown]
  - Irritability [Unknown]
  - Frustration [Unknown]
  - Drug administration error [Unknown]
  - Physical assault [Unknown]
  - Akathisia [Unknown]
